FAERS Safety Report 17206365 (Version 1)
Quarter: 2020Q1

REPORT INFORMATION
  Report Type: Spontaneous
  Country: US (occurrence: US)
  Receive Date: 20191226
  Receipt Date: 20191226
  Transmission Date: 20200409
  Serious: Yes (Other)
  Sender: FDA-Public Use
  Company Number: None

PATIENT
  Age: 84 Year
  Sex: Female
  Weight: 70.65 kg

DRUGS (22)
  1. AFINITOR [Concomitant]
     Active Substance: EVEROLIMUS
  2. FAMOTIDINE. [Concomitant]
     Active Substance: FAMOTIDINE
  3. LOSARTAN. [Concomitant]
     Active Substance: LOSARTAN
  4. METOPROLOL. [Concomitant]
     Active Substance: METOPROLOL
  5. SIMVASTATIN. [Concomitant]
     Active Substance: SIMVASTATIN
  6. CAPECITABINE. [Suspect]
     Active Substance: CAPECITABINE
     Indication: BREAST CANCER
     Route: 048
     Dates: start: 20190502, end: 20191226
  7. KLOR-CON M20 [Concomitant]
     Active Substance: POTASSIUM CHLORIDE
  8. DIPHENHYDRAMINE. [Concomitant]
     Active Substance: DIPHENHYDRAMINE
  9. MULTIVITAMIN [Concomitant]
     Active Substance: VITAMINS
  10. XGEVA [Concomitant]
     Active Substance: DENOSUMAB
  11. XARELTO [Concomitant]
     Active Substance: RIVAROXABAN
  12. FASLODEX [Concomitant]
     Active Substance: FULVESTRANT
  13. COENZYME Q10 [Concomitant]
     Active Substance: UBIDECARENONE
  14. DEXAMETHASONE. [Concomitant]
     Active Substance: DEXAMETHASONE
  15. MAXITROL [Concomitant]
     Active Substance: DEXAMETHASONE\NEOMYCIN SULFATE\POLYMYXIN B SULFATE
  16. PREMARIN [Concomitant]
     Active Substance: ESTROGENS, CONJUGATED
  17. PROCRIT [Concomitant]
     Active Substance: ERYTHROPOIETIN
  18. IBRANCE [Concomitant]
     Active Substance: PALBOCICLIB
  19. LINZESS [Concomitant]
     Active Substance: LINACLOTIDE
  20. NEUPOGEN [Concomitant]
     Active Substance: FILGRASTIM
  21. ALEVE [Concomitant]
     Active Substance: NAPROXEN SODIUM
  22. COLACE [Concomitant]
     Active Substance: DOCUSATE SODIUM

REACTIONS (1)
  - Therapy non-responder [None]

NARRATIVE: CASE EVENT DATE: 20191226
